FAERS Safety Report 9795414 (Version 1)
Quarter: 2014Q1

REPORT INFORMATION
  Report Type: Spontaneous
  Country: US (occurrence: US)
  Receive Date: 20140103
  Receipt Date: 20140103
  Transmission Date: 20141002
  Serious: Yes (Other)
  Sender: FDA-Public Use
  Company Number: US-BAYER-2013-159515

PATIENT
  Sex: Female

DRUGS (3)
  1. YAZ [Suspect]
     Route: 048
  2. YASMIN [Suspect]
     Route: 048
  3. OCELLA [Suspect]
     Route: 048

REACTIONS (5)
  - Cerebrovascular accident [None]
  - Pain [None]
  - Injury [None]
  - Thrombosis [None]
  - Pain [None]
